FAERS Safety Report 16482813 (Version 2)
Quarter: 2019Q3

REPORT INFORMATION
  Report Type: Report from Study
  Country: None (occurrence: US)
  Receive Date: 20190627
  Receipt Date: 20190709
  Transmission Date: 20191004
  Serious: Yes (Other)
  Sender: FDA-Public Use
  Company Number: US-INSMED, INC.-US-INS-19-01992

PATIENT
  Sex: Female

DRUGS (4)
  1. ARIKAYCE [Suspect]
     Active Substance: AMIKACIN
     Indication: MYCOBACTERIUM ABSCESSUS INFECTION
     Route: 055
     Dates: start: 2019, end: 201905
  2. ERYTHROMYCIN. [Concomitant]
     Active Substance: ERYTHROMYCIN
     Indication: PRODUCT USED FOR UNKNOWN INDICATION
  3. ARIKAYCE [Suspect]
     Active Substance: AMIKACIN
     Indication: BRONCHIECTASIS
  4. LAMIRA NEBULIZER SYSTEM [Suspect]
     Active Substance: DEVICE

REACTIONS (3)
  - Cataract [Unknown]
  - Nephrolithiasis [Unknown]
  - Off label use [Unknown]

NARRATIVE: CASE EVENT DATE: 2019
